FAERS Safety Report 4551120-2 (Version None)
Quarter: 2005Q1

REPORT INFORMATION
  Report Type: 
  Country: None (occurrence: None)
  Receive Date: 20050107
  Receipt Date: 20050105
  Transmission Date: 20050727
  Serious: Yes (Other)
  Sender: FDA-Public Use
  Company Number: 163-20785-05010012

PATIENT
  Age: 40 Year
  Sex: Female

DRUGS (1)
  1. THALOMID [Suspect]
     Indication: MULTIPLE MYELOMA
     Dosage: DAILY, ORAL
     Route: 048
     Dates: start: 20040413

REACTIONS (2)
  - BLOOD HUMAN CHORIONIC GONADOTROPIN INCREASED [None]
  - LABORATORY TEST INTERFERENCE [None]
